FAERS Safety Report 9945564 (Version 1)
Quarter: 2014Q1

REPORT INFORMATION
  Report Type: Report from Study
  Country: US (occurrence: US)
  Receive Date: 20140303
  Receipt Date: 20140303
  Transmission Date: 20141002
  Serious: No
  Sender: FDA-Public Use
  Company Number: US-ABBVIE-13P-163-1048613-00

PATIENT
  Age: 70 Year
  Sex: Female

DRUGS (9)
  1. HUMIRA [Suspect]
     Indication: CROHN^S DISEASE
     Dates: start: 20121125
  2. METFORMIN [Concomitant]
     Indication: PRODUCT USED FOR UNKNOWN INDICATION
  3. HUMALOG INSULIN [Concomitant]
     Indication: DIABETES MELLITUS
     Dosage: SLIDING SCALE
  4. SYNTHROID [Concomitant]
     Indication: HYPOTHYROIDISM
  5. ENALAPRIL [Concomitant]
     Indication: PRODUCT USED FOR UNKNOWN INDICATION
  6. MSM [Concomitant]
     Indication: MINERAL SUPPLEMENTATION
     Dosage: 3 TIMES DAILY
  7. FLORESTOR [Concomitant]
     Indication: DRUG THERAPY
  8. MULTIVITAMINS [Concomitant]
     Indication: PRODUCT USED FOR UNKNOWN INDICATION
     Dosage: DAILY
  9. FLONASE [Concomitant]
     Indication: NASAL CONGESTION
     Dosage: TWICE DAILY

REACTIONS (1)
  - Diarrhoea [Not Recovered/Not Resolved]
